FAERS Safety Report 9397107 (Version 2)
Quarter: 2013Q3

REPORT INFORMATION
  Report Type: Spontaneous
  Country: US (occurrence: US)
  Receive Date: 20130712
  Receipt Date: 20130716
  Transmission Date: 20140515
  Serious: No
  Sender: FDA-Public Use
  Company Number: US-009507513-1306USA007110

PATIENT
  Age: 67 Year
  Sex: Female

DRUGS (3)
  1. ZETIA [Suspect]
     Indication: BLOOD CHOLESTEROL INCREASED
     Dosage: 10MG TAKEN ONCE DAILY AT BED TIME
     Route: 048
     Dates: start: 201301, end: 20130601
  2. ZETIA [Suspect]
     Dosage: 10MG TAKEN ONCE DAILY AT BED TIME
     Route: 048
     Dates: start: 20130610
  3. CRESTOR [Concomitant]

REACTIONS (3)
  - Arthritis [Not Recovered/Not Resolved]
  - Arthralgia [Not Recovered/Not Resolved]
  - Myalgia [Not Recovered/Not Resolved]
